FAERS Safety Report 11889742 (Version 1)
Quarter: 2016Q1

REPORT INFORMATION
  Report Type: Spontaneous
  Country: ES (occurrence: ES)
  Receive Date: 20160105
  Receipt Date: 20160105
  Transmission Date: 20160526
  Serious: Yes (Hospitalization)
  Sender: FDA-Public Use
  Company Number: ES-SA-2015SA210736

PATIENT

DRUGS (1)
  1. LEMTRADA [Suspect]
     Active Substance: ALEMTUZUMAB
     Route: 041
     Dates: end: 20151204

REACTIONS (3)
  - Listeriosis [Recovered/Resolved]
  - Chills [Recovered/Resolved with Sequelae]
  - Pyrexia [Recovered/Resolved]
